FAERS Safety Report 12957180 (Version 1)
Quarter: 2016Q4

REPORT INFORMATION
  Report Type: Spontaneous
  Country: ES (occurrence: ES)
  Receive Date: 20161119
  Receipt Date: 20161119
  Transmission Date: 20170207
  Serious: Yes (Other)
  Sender: FDA-Public Use
  Company Number: ES-ASTRAZENECA-2016SF21984

PATIENT
  Age: 79 Year
  Sex: Female

DRUGS (3)
  1. OLAPARIB [Suspect]
     Active Substance: OLAPARIB
     Indication: OVARIAN CANCER STAGE III
     Dosage: CYCLE 3 AND 21 DAYS (EVERY 12 HOURS)
     Route: 048
     Dates: start: 20160918, end: 20161019
  2. MIRTAZAPINE. [Concomitant]
     Active Substance: MIRTAZAPINE
  3. OLAPARIB [Suspect]
     Active Substance: OLAPARIB
     Indication: OVARIAN CANCER STAGE III
     Dosage: CYCLE 1 AND 2 (EVERY 12 HOURS)
     Route: 048
     Dates: start: 20160719, end: 20160916

REACTIONS (3)
  - Hepatotoxicity [Recovered/Resolved]
  - Tinnitus [Recovered/Resolved]
  - Anaemia [Unknown]

NARRATIVE: CASE EVENT DATE: 20160825
